FAERS Safety Report 8232275-5 (Version None)
Quarter: 2012Q1

REPORT INFORMATION
  Report Type: 
  Country: None (occurrence: None)
  Receive Date: 20120323
  Receipt Date: 20120319
  Transmission Date: 20120608
  Serious: Yes (Death)
  Sender: FDA-Public Use
  Company Number: AT-CUBIST-2012S1000015

PATIENT
  Age: 69 Year
  Sex: Female
  Weight: 65 kg

DRUGS (2)
  1. CUBICIN [Suspect]
     Indication: ENTEROCOCCAL INFECTION
     Route: 042
     Dates: start: 20100408, end: 20100409
  2. CUBICIN [Suspect]
     Route: 042
     Dates: start: 20100408, end: 20100409

REACTIONS (3)
  - BREAST CANCER [None]
  - LARGE INTESTINE PERFORATION [None]
  - WOUND INFECTION [None]
